FAERS Safety Report 4436739-1 (Version None)
Quarter: 2004Q3

REPORT INFORMATION
  Report Type: 
  Country: None (occurrence: None)
  Receive Date: 20040830
  Receipt Date: 20040820
  Transmission Date: 20050211
  Serious: Yes (Other)
  Sender: FDA-Public Use
  Company Number: 200416391US

PATIENT
  Age: 43 Year
  Sex: Female

DRUGS (1)
  1. ARAVA [Suspect]
     Dosage: DOSE: UNK

REACTIONS (1)
  - HAEMOLYTIC ANAEMIA [None]
